FAERS Safety Report 9647953 (Version 1)
Quarter: 2013Q4

REPORT INFORMATION
  Report Type: Spontaneous
  Country: US (occurrence: None)
  Receive Date: 20131024
  Receipt Date: 20131024
  Transmission Date: 20140711
  Serious: Yes (Disabling, Other)
  Sender: FDA-Public Use
  Company Number: None

PATIENT
  Age: 24 Year
  Sex: Female
  Weight: 68.04 kg

DRUGS (5)
  1. CHANTIX [Suspect]
     Indication: SMOKING CESSATION THERAPY
     Route: 048
     Dates: start: 20131003, end: 20131022
  2. FLUTICASONE [Concomitant]
  3. INHALER [Concomitant]
  4. CENTRUM MULTI-VITAMIN [Concomitant]
  5. CALCIUM [Concomitant]

REACTIONS (13)
  - Euphoric mood [None]
  - Palpitations [None]
  - Feeling cold [None]
  - Chills [None]
  - Mental status changes [None]
  - Depression [None]
  - Anxiety [None]
  - Irritability [None]
  - Confusional state [None]
  - Disturbance in attention [None]
  - Affect lability [None]
  - Thinking abnormal [None]
  - Crying [None]
